FAERS Safety Report 8872056 (Version 1)
Quarter: 2012Q4

REPORT INFORMATION
  Report Type: Spontaneous
  Country: US (occurrence: None)
  Receive Date: 20121026
  Receipt Date: 20121026
  Transmission Date: 20130627
  Serious: No
  Sender: FDA-Public Use
  Company Number: None

PATIENT
  Age: 58 Year
  Sex: Male
  Weight: 111.7 kg

DRUGS (2)
  1. PEGINTERFERON [Suspect]
     Indication: HEPATITIS C
     Dosage: 180 MCG QWEEK SQ
     Route: 058
     Dates: start: 20120712, end: 20120830
  2. RIBAVIRIN [Suspect]
     Dosage: 600 MG BID PO
     Route: 048
     Dates: start: 20120712, end: 20120904

REACTIONS (2)
  - Leukopenia [None]
  - Anaemia [None]
